FAERS Safety Report 9260425 (Version 1)
Quarter: 2013Q2

REPORT INFORMATION
  Report Type: Report from Study
  Country: CA (occurrence: CA)
  Receive Date: 20130429
  Receipt Date: 20130429
  Transmission Date: 20140414
  Serious: Yes (Hospitalization)
  Sender: FDA-Public Use
  Company Number: CA-JNJFOC-20130411536

PATIENT
  Age: 41 Year
  Sex: Female
  Weight: 80 kg

DRUGS (6)
  1. REMICADE [Suspect]
     Indication: PRODUCT USED FOR UNKNOWN INDICATION
     Route: 042
     Dates: start: 20130408
  2. SYNTHROID [Concomitant]
     Dosage: 0.15 MCG
     Route: 065
  3. IMURAN [Concomitant]
     Dosage: 0.15 MCG
     Route: 065
  4. PREDNISONE [Concomitant]
     Dosage: 0.15 MCG
     Route: 065
  5. OXYCONTIN [Concomitant]
     Dosage: 0.15 MCG
     Route: 065
  6. ALPRAZOLAM [Concomitant]
     Dosage: 0.15 MCG
     Route: 065

REACTIONS (5)
  - Paraesthesia [Unknown]
  - Dizziness [Unknown]
  - Nausea [Unknown]
  - Chest discomfort [Unknown]
  - Headache [Unknown]
